FAERS Safety Report 8242857-2 (Version None)
Quarter: 2012Q1

REPORT INFORMATION
  Report Type: 
  Country: None (occurrence: None)
  Receive Date: 20120329
  Receipt Date: 20120319
  Transmission Date: 20120608
  Serious: Yes (Other)
  Sender: FDA-Public Use
  Company Number: JP-JNJFOC-20111000544

PATIENT
  Sex: Male
  Weight: 71 kg

DRUGS (16)
  1. ACETAMINOPHEN [Concomitant]
     Dates: start: 20100212
  2. OMEPRAZOLE [Concomitant]
     Indication: GASTROOESOPHAGEAL REFLUX DISEASE
     Route: 048
  3. REMICADE [Suspect]
     Indication: BEHCET'S SYNDROME
     Route: 042
     Dates: start: 20100212
  4. REMICADE [Suspect]
     Route: 042
     Dates: start: 20100114
  5. DILTIAZEM HCL [Concomitant]
     Indication: PRINZMETAL ANGINA
     Route: 048
  6. SIGMART [Concomitant]
     Indication: PRINZMETAL ANGINA
     Route: 048
  7. PURSENNID [Concomitant]
     Indication: CONSTIPATION
     Route: 048
  8. STEROIDS NOS [Concomitant]
     Route: 050
  9. NEORAL [Concomitant]
     Indication: BEHCET'S SYNDROME
     Route: 048
     Dates: start: 20090926
  10. ACETAMINOPHEN [Concomitant]
     Indication: PROPHYLAXIS
     Dates: start: 20091228
  11. HALCION [Concomitant]
     Indication: INSOMNIA
     Route: 048
  12. REMICADE [Suspect]
     Dosage: TOTAL NUMBER OF INFUSIONS: 3
     Route: 042
     Dates: start: 20091228
  13. ANTIHISTAMINES [Concomitant]
     Dates: start: 20091228
  14. OLMESARTAN MEDOXOMIL [Concomitant]
     Indication: PRINZMETAL ANGINA
     Route: 048
  15. ASPIRIN [Concomitant]
     Indication: PRINZMETAL ANGINA
     Route: 048
  16. ANTIHISTAMINES [Concomitant]
     Indication: PROPHYLAXIS
     Dates: start: 20100212

REACTIONS (2)
  - LIVER DISORDER [None]
  - LEUKOCYTOCLASTIC VASCULITIS [None]
